FAERS Safety Report 18923993 (Version 5)
Quarter: 2021Q4

REPORT INFORMATION
  Report Type: Report from Study
  Country: BR (occurrence: BR)
  Receive Date: 20210222
  Receipt Date: 20211125
  Transmission Date: 20220303
  Serious: Yes (Hospitalization, Other)
  Sender: FDA-Public Use
  Company Number: NVSC2021BR025504

PATIENT
  Age: 74 Year
  Sex: Female
  Weight: 75 kg

DRUGS (11)
  1. PIQRAY [Suspect]
     Active Substance: ALPELISIB
     Indication: Breast cancer
     Dosage: UNK
     Route: 065
     Dates: start: 202001
  2. PIQRAY [Suspect]
     Active Substance: ALPELISIB
     Dosage: UNK, QD
     Route: 048
     Dates: start: 20200605
  3. PIQRAY [Suspect]
     Active Substance: ALPELISIB
     Dosage: UNK (TABLET)
     Route: 065
     Dates: start: 202006
  4. PIQRAY [Suspect]
     Active Substance: ALPELISIB
     Dosage: 250 MG
     Route: 065
     Dates: start: 202007
  5. PIQRAY [Suspect]
     Active Substance: ALPELISIB
     Dosage: 200 MG
     Route: 065
  6. LEVOTHYROXINE SODIUM [Concomitant]
     Active Substance: LEVOTHYROXINE SODIUM
     Indication: Thyroid disorder
     Dosage: UNK, QD
     Route: 048
     Dates: start: 202008
  7. LOSARTAN POTASSIUM [Concomitant]
     Active Substance: LOSARTAN POTASSIUM
     Indication: Blood pressure measurement
     Dosage: UNK, BID
     Route: 048
     Dates: start: 202008
  8. ROSUVASTATIN CALCIUM [Concomitant]
     Active Substance: ROSUVASTATIN CALCIUM
     Indication: Blood cholesterol
     Dosage: UNK, QD
     Route: 048
     Dates: start: 202008
  9. LINAGLIPTIN [Concomitant]
     Active Substance: LINAGLIPTIN
     Indication: Blood glucose
     Dosage: UNK, QD
     Route: 048
     Dates: start: 202008
  10. LOPERAMIDE [Concomitant]
     Active Substance: LOPERAMIDE
     Indication: Blood glucose
     Dosage: UNK, QD
     Route: 048
     Dates: start: 202008
  11. SACCHAROMYCES CEREVISIAE [Concomitant]
     Active Substance: SACCHAROMYCES CEREVISIAE
     Indication: Blood glucose
     Dosage: UNK, Q12H
     Route: 048
     Dates: start: 202008

REACTIONS (8)
  - Type 2 diabetes mellitus [Unknown]
  - Hyperglycaemia [Recovering/Resolving]
  - Blood glucose increased [Recovered/Resolved]
  - Dysentery [Unknown]
  - Hepatic lesion [Unknown]
  - Muscle injury [Recovering/Resolving]
  - Weight decreased [Recovered/Resolved]
  - Drug ineffective [Unknown]

NARRATIVE: CASE EVENT DATE: 20200701
